FAERS Safety Report 12558102 (Version 2)
Quarter: 2016Q3

REPORT INFORMATION
  Report Type: Report from Study
  Country: PL (occurrence: PL)
  Receive Date: 20160714
  Receipt Date: 20160802
  Transmission Date: 20161109
  Serious: Yes (Hospitalization)
  Sender: FDA-Public Use
  Company Number: PL-ASTRAZENECA-2016SE74100

PATIENT
  Age: 25272 Day
  Sex: Male

DRUGS (13)
  1. FOCUSIN [Concomitant]
     Indication: PROSTATIC ADENOMA
     Route: 048
  2. ZOCOR [Concomitant]
     Active Substance: SIMVASTATIN
     Indication: DIABETES MELLITUS
     Route: 058
     Dates: start: 20150630
  3. PRIMACOR [Concomitant]
     Active Substance: MILRINONE LACTATE
     Indication: HYPERTENSION
     Route: 048
     Dates: start: 20140403, end: 20160629
  4. HUMULIN M3 [Concomitant]
     Active Substance: INSULIN HUMAN
     Indication: DIABETES MELLITUS
     Route: 058
     Dates: start: 20141210
  5. DAPAGLIFLOZIN [Suspect]
     Active Substance: DAPAGLIFLOZIN
     Indication: TYPE 2 DIABETES MELLITUS
     Route: 048
     Dates: start: 20140811
  6. APO-FINA [Concomitant]
     Indication: PROSTATIC ADENOMA
     Route: 048
     Dates: start: 20150919
  7. TIALORID [Concomitant]
     Indication: HYPERTENSION
     Route: 048
     Dates: start: 20150630, end: 20160629
  8. ANDROSTER [Concomitant]
     Indication: PROSTATIC ADENOMA
     Route: 048
     Dates: start: 20150820
  9. AVEDOL [Concomitant]
     Active Substance: CARVEDILOL
     Indication: HYPERTENSION
     Route: 048
  10. ACARD [Concomitant]
     Active Substance: ASPIRIN
     Indication: PROPHYLAXIS
     Route: 048
  11. CLOPIDOGREL [Concomitant]
     Active Substance: CLOPIDOGREL BISULFATE
     Indication: PROPHYLAXIS
     Route: 048
     Dates: start: 20140329, end: 20160629
  12. NOLPAZA [Concomitant]
     Active Substance: PANTOPRAZOLE SODIUM
     Indication: GASTROOESOPHAGEAL REFLUX DISEASE
     Route: 048
     Dates: start: 20140403
  13. FORMETIC [Concomitant]
     Indication: DIABETES MELLITUS
     Route: 048

REACTIONS (1)
  - Angina pectoris [Not Recovered/Not Resolved]

NARRATIVE: CASE EVENT DATE: 20160110
